FAERS Safety Report 12423960 (Version 1)
Quarter: 2016Q2

REPORT INFORMATION
  Report Type: Spontaneous
  Country: US (occurrence: US)
  Receive Date: 20160601
  Receipt Date: 20160601
  Transmission Date: 20160815
  Serious: No
  Sender: FDA-Public Use
  Company Number: US-NOVEN PHARMACEUTICALS, INC.-US2016000446

PATIENT

DRUGS (8)
  1. TENEX [Concomitant]
     Active Substance: GUANFACINE HYDROCHLORIDE
  2. DILANTIN [Concomitant]
     Active Substance: PHENYTOIN
     Dosage: 500 MG, UNK
  3. DAYTRANA [Suspect]
     Active Substance: METHYLPHENIDATE
     Dosage: 15 MG, UNKNOWN
     Route: 062
     Dates: start: 201503
  4. DAYTRANA [Suspect]
     Active Substance: METHYLPHENIDATE
     Indication: ATTENTION DEFICIT/HYPERACTIVITY DISORDER
     Dosage: 15 MG, UNKNOWN
     Route: 062
     Dates: start: 2013
  5. INTUNIV [Concomitant]
     Active Substance: GUANFACINE HYDROCHLORIDE
     Dosage: 3MG IN THE MORNING AND 2MG AT NIGHT
  6. DAYTRANA [Suspect]
     Active Substance: METHYLPHENIDATE
     Dosage: 20 MG, UNKNOWN
     Route: 062
  7. ABILIFY [Concomitant]
     Active Substance: ARIPIPRAZOLE
  8. PREVACID [Concomitant]
     Active Substance: LANSOPRAZOLE

REACTIONS (4)
  - Off label use [Not Recovered/Not Resolved]
  - Psychomotor hyperactivity [Unknown]
  - Wrong technique in product usage process [Not Recovered/Not Resolved]
  - Feeling jittery [Unknown]

NARRATIVE: CASE EVENT DATE: 201603
